FAERS Safety Report 5838973-2 (Version None)
Quarter: 2008Q3

REPORT INFORMATION
  Report Type: 
  Country: None (occurrence: None)
  Receive Date: 20080808
  Receipt Date: 20080721
  Transmission Date: 20090109
  Serious: No
  Sender: FDA-Public Use
  Company Number: US-BOEHRINGER INGELHEIM GMBH, GERMANY-2008-BP-11471BP

PATIENT
  Sex: Female

DRUGS (7)
  1. SPIRIVA [Suspect]
     Route: 055
  2. SYNTHROID [Concomitant]
     Indication: THYROID CANCER
     Route: 048
  3. TRICOR [Concomitant]
     Indication: HYPERTRIGLYCERIDAEMIA
     Route: 048
  4. TOPROL-XL [Concomitant]
     Indication: ANGINA PECTORIS
     Route: 048
  5. PRILOSEC [Concomitant]
     Indication: REFLUX GASTRITIS
     Route: 048
  6. STOOL SOFTENER [Concomitant]
     Indication: IRRITABLE BOWEL SYNDROME
     Route: 048
  7. ZELNORM [Concomitant]
     Indication: IRRITABLE BOWEL SYNDROME
     Route: 048

REACTIONS (2)
  - DYSPNOEA [None]
  - LETHARGY [None]
